FAERS Safety Report 6993680-8 (Version None)
Quarter: 2010Q3

REPORT INFORMATION
  Report Type: 
  Country: None (occurrence: None)
  Receive Date: 20100917
  Receipt Date: 20070810
  Transmission Date: 20110219
  Serious: Yes (Hospitalization, Other)
  Sender: FDA-Public Use
  Company Number: US-ASTRAZENECA-2007UW02152

PATIENT
  Age: 12486 Day
  Sex: Male
  Weight: 110.2 kg

DRUGS (23)
  1. SEROQUEL [Suspect]
     Indication: SCHIZOPHRENIA
     Dosage: STRENGTH 25MG, 100MG, 200MG.  DOSE-50MG TO 600MG.
     Route: 048
     Dates: start: 20000510
  2. SEROQUEL [Suspect]
     Indication: SCHIZOAFFECTIVE DISORDER
     Dosage: STRENGTH 25MG, 100MG, 200MG.  DOSE-50MG TO 600MG.
     Route: 048
     Dates: start: 20000510
  3. SEROQUEL [Suspect]
     Dosage: 350 MG - 800 MG
     Route: 048
     Dates: start: 20020201
  4. SEROQUEL [Suspect]
     Dosage: 350 MG - 800 MG
     Route: 048
     Dates: start: 20020201
  5. CLOZARIL [Concomitant]
     Route: 048
     Dates: start: 19900101
  6. GEODON [Concomitant]
     Dosage: 80 MG - 160 MG
     Route: 048
     Dates: start: 20060101, end: 20060801
  7. GEODON [Concomitant]
     Dosage: DOSE 80MG TO 200MG.
     Dates: start: 20060101
  8. HALDOL [Concomitant]
     Dates: start: 19890101, end: 19980101
  9. NAVANE [Concomitant]
     Route: 048
     Dates: start: 19900101, end: 19970101
  10. NAVANE [Concomitant]
     Route: 048
     Dates: start: 20030101, end: 20061001
  11. ESKALITH [Concomitant]
     Route: 048
     Dates: start: 20030101
  12. DEPAKOTE [Concomitant]
     Route: 048
     Dates: start: 20030601
  13. RISPERDAL [Concomitant]
     Route: 048
     Dates: start: 19900101, end: 19910101
  14. PREVACID [Concomitant]
     Dosage: DOSE 30MG TO 80MG
     Dates: start: 20050101
  15. LORAZEPAM [Concomitant]
     Dates: start: 20060101
  16. WELLBUTRIN [Concomitant]
     Dates: start: 20070101
  17. GLIPIZIDE [Concomitant]
     Dates: start: 20070101
  18. METFORMIN [Concomitant]
     Dates: start: 20070101
  19. HYZAAR [Concomitant]
     Dosage: DOSE 50/12.5-50/25 DAILY
     Dates: start: 20040101
  20. ACTOS [Concomitant]
     Route: 048
     Dates: start: 20040101
  21. AVANDIA [Concomitant]
     Dosage: DOSE 2 MG TO 4 MG.
     Route: 048
     Dates: start: 20040101, end: 20060101
  22. THIOTHIXENE [Concomitant]
     Dates: start: 20000101
  23. BENZTROPINE MES [Concomitant]
     Dates: start: 20000101

REACTIONS (13)
  - ANAEMIA [None]
  - CATARACT [None]
  - DIABETES MELLITUS INADEQUATE CONTROL [None]
  - DIZZINESS [None]
  - GLAUCOMA [None]
  - HYPERGLYCAEMIA [None]
  - MUSCULAR WEAKNESS [None]
  - OTITIS MEDIA CHRONIC [None]
  - PANCREATITIS [None]
  - RENAL FAILURE [None]
  - RENAL FAILURE CHRONIC [None]
  - SYNCOPE [None]
  - TYPE 2 DIABETES MELLITUS [None]
